FAERS Safety Report 4431443-8 (Version None)
Quarter: 2004Q3

REPORT INFORMATION
  Report Type: 
  Country: None (occurrence: None)
  Receive Date: 20040824
  Receipt Date: 20040521
  Transmission Date: 20050211
  Serious: Yes (Hospitalization)
  Sender: FDA-Public Use
  Company Number: DE-GLAXOSMITHKLINE-D0043842A

PATIENT
  Age: 38 Year
  Sex: Male
  Weight: 105 kg

DRUGS (15)
  1. AUGMENTIN [Suspect]
     Indication: PNEUMOCYSTIS CARINII PNEUMONIA
     Dosage: 1.2G THREE TIMES PER DAY
     Route: 042
     Dates: start: 20040507, end: 20040519
  2. EUSAPRIM [Suspect]
     Indication: PNEUMOCYSTIS CARINII PNEUMONIA
     Dosage: 6AMP THREE TIMES PER DAY
     Route: 042
     Dates: start: 20040507, end: 20040519
  3. FLUCONAZOLE [Suspect]
     Indication: ORAL CANDIDIASIS
     Dosage: 400MG PER DAY
     Route: 042
     Dates: start: 20040507, end: 20040521
  4. SODIUM CHLORIDE 0.9% [Concomitant]
     Dosage: 500ML THREE TIMES PER DAY
     Route: 042
     Dates: start: 20040507, end: 20040519
  5. SOLU-DECORTIN-H [Concomitant]
     Indication: PNEUMOCYSTIS CARINII PNEUMONIA
     Dosage: 50MG PER DAY
     Route: 042
     Dates: start: 20040507, end: 20040521
  6. PANTOPRAZOLE SODIUM [Concomitant]
     Indication: REFLUX OESOPHAGITIS
     Dosage: 40MG PER DAY
     Route: 042
     Dates: start: 20040507, end: 20040521
  7. WELLVONE [Concomitant]
     Indication: PNEUMOCYSTIS CARINII PNEUMONIA
     Dosage: 5ML TWICE PER DAY
     Route: 048
     Dates: start: 20040519
  8. VANCOMYCIN [Concomitant]
     Indication: CATHETER SEPSIS
     Route: 065
     Dates: start: 20040101
  9. EPIVIR [Concomitant]
     Indication: HIV INFECTION
     Dosage: 300MG PER DAY
     Route: 065
     Dates: start: 20040101
  10. VIREAD [Concomitant]
     Indication: HIV INFECTION
     Dosage: 245MG PER DAY
     Route: 065
     Dates: start: 20040101
  11. KALETRA [Concomitant]
     Indication: HIV INFECTION
     Dosage: 5ML TWICE PER DAY
     Route: 048
     Dates: start: 20040101
  12. OMEPRAZOLE [Concomitant]
     Dosage: 1U TWICE PER DAY
     Route: 065
     Dates: start: 20040101
  13. TRENTAL [Concomitant]
     Dosage: 600MG IN THE MORNING
     Route: 065
     Dates: start: 20040101
  14. ALNA [Concomitant]
     Dosage: 1U IN THE MORNING
     Route: 065
     Dates: start: 20040101
  15. UNFRACTIONATED HEPARIN [Concomitant]
     Dosage: 7500IU TWICE PER DAY
     Route: 065
     Dates: start: 20040101

REACTIONS (8)
  - CAROTID ARTERY DISSECTION [None]
  - CATHETER SEPSIS [None]
  - CEREBRAL ISCHAEMIA [None]
  - HEMIPARESIS [None]
  - HEPATIC ENZYME INCREASED [None]
  - HEPATOCELLULAR DAMAGE [None]
  - HEPATOTOXICITY [None]
  - PLATELET COUNT DECREASED [None]
